FAERS Safety Report 9254843 (Version 1)
Quarter: 2013Q2

REPORT INFORMATION
  Report Type: Report from Study
  Country: GB (occurrence: GB)
  Receive Date: 20130425
  Receipt Date: 20130425
  Transmission Date: 20140414
  Serious: Yes (Hospitalization)
  Sender: FDA-Public Use
  Company Number: GB-ABBOTT-13P-167-1078716-00

PATIENT
  Age: 49 Year
  Sex: Male
  Weight: 80.1 kg

DRUGS (6)
  1. HUMIRA [Suspect]
     Indication: PSORIASIS
     Route: 058
     Dates: start: 20110126
  2. HUMIRA [Suspect]
     Route: 058
     Dates: start: 20120702
  3. NIFEDIPINE [Concomitant]
     Indication: PRODUCT USED FOR UNKNOWN INDICATION
     Dates: start: 19980101
  4. OMEPRAZOLE [Concomitant]
     Indication: PRODUCT USED FOR UNKNOWN INDICATION
     Dates: start: 20110204
  5. PERINDOPRIL [Concomitant]
     Indication: PRODUCT USED FOR UNKNOWN INDICATION
     Dates: start: 20110204
  6. SIMVASTATIN [Concomitant]
     Indication: PRODUCT USED FOR UNKNOWN INDICATION
     Dates: start: 20110204, end: 20120626

REACTIONS (4)
  - Haemorrhage intracranial [Recovering/Resolving]
  - Hemiplegia [Recovering/Resolving]
  - Speech disorder [Recovering/Resolving]
  - Thalamic infarction [Recovering/Resolving]
